FAERS Safety Report 21832305 (Version 1)
Quarter: 2023Q1

REPORT INFORMATION
  Report Type: Spontaneous
  Country: US (occurrence: US)
  Receive Date: 20230106
  Receipt Date: 20230106
  Transmission Date: 20230417
  Serious: Yes (Hospitalization)
  Sender: FDA-Public Use
  Company Number: US-MYLANLABS-2022M1140904

PATIENT
  Age: 45 Year
  Sex: Female

DRUGS (3)
  1. NOREPINEPHRINE [Suspect]
     Active Substance: NOREPINEPHRINE
     Indication: Hypotension
     Dosage: UNK
     Route: 042
  2. PHENYLEPHRINE [Suspect]
     Active Substance: PHENYLEPHRINE HYDROCHLORIDE
     Indication: Drug therapy
     Dosage: UNK
     Route: 065
  3. VASOPRESSIN [Concomitant]
     Active Substance: VASOPRESSIN
     Indication: Hypotension
     Dosage: UNK
     Route: 042

REACTIONS (7)
  - Stress cardiomyopathy [Unknown]
  - Sinus arrhythmia [Unknown]
  - Electrocardiogram ST segment depression [Unknown]
  - Systolic dysfunction [Unknown]
  - Akinesia [Unknown]
  - Left ventricular end-diastolic pressure increased [Unknown]
  - Pulmonary arterial pressure increased [Unknown]
